FAERS Safety Report 7331699-8 (Version None)
Quarter: 2011Q1

REPORT INFORMATION
  Report Type: 
  Country: None (occurrence: None)
  Receive Date: 20110304
  Receipt Date: 20110224
  Transmission Date: 20110831
  Serious: Yes (Hospitalization)
  Sender: FDA-Public Use
  Company Number: JP-NOVOPROD-322862

PATIENT
  Age: 8 Year
  Sex: Female
  Weight: 19 kg

DRUGS (1)
  1. NORDITROPIN NORDIFLEX CHU [Suspect]
     Indication: SMALL FOR DATES BABY
     Dosage: 4.2 MG, QD
     Route: 058
     Dates: start: 20100512, end: 20110107

REACTIONS (4)
  - NECK PAIN [None]
  - PYREXIA [None]
  - HEADACHE [None]
  - KAWASAKI'S DISEASE [None]
